FAERS Safety Report 18827896 (Version 1)
Quarter: 2021Q1

REPORT INFORMATION
  Report Type: Report from Study
  Country: None (occurrence: CA)
  Receive Date: 20210202
  Receipt Date: 20210202
  Transmission Date: 20210419
  Serious: Yes (Other)
  Sender: FDA-Public Use
  Company Number: CA-ABBVIE-21K-028-3753626-00

PATIENT
  Sex: Female

DRUGS (1)
  1. RINVOQ [Suspect]
     Active Substance: UPADACITINIB
     Indication: RHEUMATOID ARTHRITIS
     Route: 048
     Dates: start: 20200813

REACTIONS (6)
  - Rectocele [Unknown]
  - Impaired quality of life [Unknown]
  - Frustration tolerance decreased [Unknown]
  - Suicidal ideation [Unknown]
  - Groin pain [Unknown]
  - Crying [Unknown]
